FAERS Safety Report 5533739-5 (Version None)
Quarter: 2007Q4

REPORT INFORMATION
  Report Type: 
  Country: None (occurrence: None)
  Receive Date: 20071204
  Receipt Date: 20071121
  Transmission Date: 20080405
  Serious: No
  Sender: FDA-Public Use
  Company Number: US-BOEHRINGER INGELHEIM PHARMACEUTICALS, INC.-2007-BP-25134BP

PATIENT
  Sex: Male

DRUGS (5)
  1. SPIRIVA [Suspect]
     Indication: CHRONIC OBSTRUCTIVE PULMONARY DISEASE
     Route: 055
     Dates: start: 20050501
  2. SPIRIVA [Suspect]
     Indication: EMPHYSEMA
  3. SPIRIVA [Suspect]
     Indication: DYSPNOEA
  4. ATROVENT HFA [Suspect]
     Route: 055
  5. ALBUTEROL SULFATE [Suspect]

REACTIONS (1)
  - BACK PAIN [None]
